FAERS Safety Report 8214754-X (Version None)
Quarter: 2012Q1

REPORT INFORMATION
  Report Type: 
  Country: None (occurrence: None)
  Receive Date: 20120316
  Receipt Date: 20120307
  Transmission Date: 20120608
  Serious: Yes (Other)
  Sender: FDA-Public Use
  Company Number: CA-SANOFI-AVENTIS-2012SA015420

PATIENT

DRUGS (2)
  1. PLAVIX [Suspect]
     Route: 065
  2. SUSTIVA [Interacting]
     Route: 065

REACTIONS (4)
  - MYOCARDIAL INFARCTION [None]
  - CARDIAC DISORDER [None]
  - DRUG INTERACTION [None]
  - DRUG INEFFECTIVE [None]
